FAERS Safety Report 8537954-8 (Version None)
Quarter: 2012Q3

REPORT INFORMATION
  Report Type: 
  Country: None (occurrence: None)
  Receive Date: 20120725
  Receipt Date: 20120717
  Transmission Date: 20120928
  Serious: Yes (Hospitalization)
  Sender: FDA-Public Use
  Company Number: ZA-ABBOTT-12P-143-0957071-00

PATIENT
  Sex: Male
  Weight: 62.4 kg

DRUGS (5)
  1. HUMIRA [Suspect]
     Indication: CROHN'S DISEASE
     Dosage: WEEK 0-160MG LOADING DOSE
     Route: 058
     Dates: start: 20120404
  2. PREDNISONE [Concomitant]
     Indication: PRODUCT USED FOR UNKNOWN INDICATION
     Route: 048
  3. HUMIRA [Suspect]
  4. HUMIRA [Suspect]
     Dosage: WEEK 2-80MG
  5. PENTASA [Concomitant]
     Indication: PRODUCT USED FOR UNKNOWN INDICATION

REACTIONS (5)
  - RENAL FAILURE CHRONIC [None]
  - HEADACHE [None]
  - CHILLS [None]
  - NAUSEA [None]
  - SYNCOPE [None]
